FAERS Safety Report 6941910-0 (Version None)
Quarter: 2010Q3

REPORT INFORMATION
  Report Type: 
  Country: None (occurrence: None)
  Receive Date: 20100826
  Receipt Date: 20100817
  Transmission Date: 20110219
  Serious: Yes (Other)
  Sender: FDA-Public Use
  Company Number: JP-JNJFOC-20100807840

PATIENT
  Age: 70 Year
  Sex: Female

DRUGS (4)
  1. LEVOFLOXACIN [Suspect]
     Indication: PRODUCT USED FOR UNKNOWN INDICATION
     Route: 065
  2. RIFAMPICIN [Concomitant]
     Route: 065
  3. CLARITHROMYCIN [Concomitant]
     Route: 065
  4. KANAMYCIN [Concomitant]
     Route: 065

REACTIONS (1)
  - NOCARDIOSIS [None]
